FAERS Safety Report 18619194 (Version 1)
Quarter: 2020Q4

REPORT INFORMATION
  Report Type: Report from Study
  Country: BR (occurrence: BR)
  Receive Date: 20201215
  Receipt Date: 20201215
  Transmission Date: 20210114
  Serious: Yes (Hospitalization)
  Sender: FDA-Public Use
  Company Number: BR-JNJFOC-20201221733

PATIENT
  Age: 38 Year
  Sex: Female
  Weight: 80 kg

DRUGS (3)
  1. INFLIXIMAB, RECOMBINANT [Suspect]
     Active Substance: INFLIXIMAB
     Indication: COLITIS
  2. INFLIXIMAB, RECOMBINANT [Suspect]
     Active Substance: INFLIXIMAB
     Indication: COLITIS ULCERATIVE
     Dosage: 4 AMPOULES
     Route: 042
  3. MESALAZINE [Concomitant]
     Active Substance: MESALAMINE

REACTIONS (1)
  - COVID-19 pneumonia [Unknown]

NARRATIVE: CASE EVENT DATE: 20200605
